FAERS Safety Report 5312360-8 (Version None)
Quarter: 2007Q2

REPORT INFORMATION
  Report Type: 
  Country: None (occurrence: None)
  Receive Date: 20070430
  Receipt Date: 20070215
  Transmission Date: 20071010
  Serious: No
  Sender: FDA-Public Use
  Company Number: 2006UW24415

PATIENT
  Sex: Male
  Weight: 74.8 kg

DRUGS (4)
  1. NEXIUM [Suspect]
     Indication: DYSPEPSIA
     Route: 048
  2. NEXIUM [Suspect]
     Indication: CHEST PAIN
     Route: 048
  3. XANAX [Concomitant]
  4. PHAZYME [Concomitant]

REACTIONS (10)
  - ANXIETY [None]
  - CONSTIPATION [None]
  - DRUG INEFFECTIVE [None]
  - DRY MOUTH [None]
  - DYSGEUSIA [None]
  - HAEMOPTYSIS [None]
  - INFERTILITY [None]
  - SEMEN ABNORMAL [None]
  - SPERM COUNT ABNORMAL [None]
  - WEIGHT DECREASED [None]
